FAERS Safety Report 17608542 (Version 2)
Quarter: 2020Q2

REPORT INFORMATION
  Report Type: Report from Study
  Country: None (occurrence: IL)
  Receive Date: 20200331
  Receipt Date: 20200403
  Transmission Date: 20200713
  Serious: Yes (Other)
  Sender: FDA-Public Use
  Company Number: IL-ABBVIE-19K-082-2851420-00

PATIENT
  Weight: 68 kg

DRUGS (19)
  1. ALLORIL [Concomitant]
     Active Substance: ALLOPURINOL
     Indication: BLOOD URIC ACID INCREASED
     Dates: start: 20190527
  2. VENCLEXTA [Suspect]
     Active Substance: VENETOCLAX
     Dosage: VENETOCLAX TITRATION - DOSE INCREASE ACCORDING TO VENETOCLAX DOSE TITRATION SCHEME
     Route: 048
     Dates: start: 20190624, end: 20190707
  3. ZEFFIX [Concomitant]
     Active Substance: LAMIVUDINE
     Indication: ANTIVIRAL PROPHYLAXIS
     Dates: start: 20190603
  4. LIPITOR [Concomitant]
     Active Substance: ATORVASTATIN CALCIUM
     Indication: PROPHYLAXIS
  5. ENTRESTO [Concomitant]
     Active Substance: SACUBITRIL\VALSARTAN
     Indication: CARDIAC FAILURE
  6. PLAVIX [Concomitant]
     Active Substance: CLOPIDOGREL BISULFATE
     Indication: CEREBROVASCULAR ACCIDENT PROPHYLAXIS
     Dates: start: 20181105
  7. HYDROCORTISONE. [Concomitant]
     Active Substance: HYDROCORTISONE
     Indication: PREMEDICATION
     Dates: start: 20190715, end: 20190715
  8. VENCLEXTA [Suspect]
     Active Substance: VENETOCLAX
     Dosage: VENETOCLAX TITRATION - DOSE INCREASE ACCORDING TO VENETOCLAX DOSE TITRATION SCHEME
     Route: 048
     Dates: start: 20190617, end: 20190623
  9. NEUPOGEN [Concomitant]
     Active Substance: FILGRASTIM
     Indication: NEUTROPHIL COUNT DECREASED
     Dates: start: 20190701, end: 20190704
  10. XARELTO [Concomitant]
     Active Substance: RIVAROXABAN
     Indication: CEREBROVASCULAR ACCIDENT PROPHYLAXIS
  11. CARDILOC [Concomitant]
     Active Substance: BISOPROLOL FUMARATE
     Indication: CARDIAC FAILURE
  12. VENCLEXTA [Suspect]
     Active Substance: VENETOCLAX
     Indication: CHRONIC LYMPHOCYTIC LEUKAEMIA
     Dosage: VENETOCLAX TITRATION - DOSE INCREASE ACCORDING TO VENETOCLAX DOSE TITRATION SCHEME
     Route: 048
     Dates: start: 20190603, end: 20190609
  13. VENCLEXTA [Suspect]
     Active Substance: VENETOCLAX
     Dosage: VENETOCLAX TITRATION - DOSE INCREASE ACCORDING TO VENETOCLAX DOSE TITRATION SCHEME
     Route: 048
     Dates: start: 20190610, end: 20190616
  14. ACTONEL [Concomitant]
     Active Substance: RISEDRONATE SODIUM
     Indication: OSTEOPOROSIS
  15. PROMETHAZINE [Concomitant]
     Active Substance: PROMETHAZINE HYDROCHLORIDE
     Indication: PREMEDICATION
     Dates: start: 20190715, end: 20190715
  16. RITUXIMAB. [Suspect]
     Active Substance: RITUXIMAB
     Indication: CHRONIC LYMPHOCYTIC LEUKAEMIA
     Dosage: CYCLE ONE
     Route: 065
     Dates: start: 20190715, end: 20190715
  17. PARACETAMOL [Concomitant]
     Active Substance: ACETAMINOPHEN
     Indication: PREMEDICATION
     Dates: start: 20190715, end: 20190715
  18. FUSID [Concomitant]
     Indication: CARDIAC FAILURE
  19. VENCLEXTA [Suspect]
     Active Substance: VENETOCLAX
     Route: 048
     Dates: start: 20190708

REACTIONS (6)
  - Adverse event [Unknown]
  - Blood phosphorus increased [Recovered/Resolved]
  - Oedema peripheral [Not Recovered/Not Resolved]
  - Basal cell carcinoma [Recovered/Resolved]
  - Cardiac failure congestive [Recovered/Resolved]
  - Neutrophil count decreased [Recovered/Resolved]

NARRATIVE: CASE EVENT DATE: 2019
